FAERS Safety Report 23370950 (Version 4)
Quarter: 2024Q4

REPORT INFORMATION
  Report Type: Spontaneous
  Country: DE (occurrence: DE)
  Receive Date: 20240105
  Receipt Date: 20241017
  Transmission Date: 20250115
  Serious: Yes (Death, Life-Threatening, Hospitalization, Other)
  Sender: BRISTOL-MYERS SQUIBB COMPANY
  Company Number: DE-BRISTOL-MYERS SQUIBB COMPANY-2024-001198

PATIENT
  Age: 86 Year
  Sex: Female
  Weight: 97.5 kg

DRUGS (2)
  1. NIVOLUMAB [Suspect]
     Active Substance: NIVOLUMAB
     Indication: Skin cancer
     Dates: start: 202111
  2. NIVOLUMAB [Suspect]
     Active Substance: NIVOLUMAB
     Indication: Malignant melanoma
     Dates: start: 20211019

REACTIONS (6)
  - Autoimmune myocarditis [Fatal]
  - Malignant neoplasm progression [Fatal]
  - Cardiac failure [Fatal]
  - Pulmonary embolism [Fatal]
  - Dysphagia [Unknown]
  - COVID-19 [Unknown]

NARRATIVE: CASE EVENT DATE: 20211109
